FAERS Safety Report 21922495 (Version 2)
Quarter: 2023Q1

REPORT INFORMATION
  Report Type: Spontaneous
  Country: BE (occurrence: BE)
  Receive Date: 20230128
  Receipt Date: 20230130
  Transmission Date: 20230417
  Serious: Yes (Other)
  Sender: FDA-Public Use
  Company Number: BE-STERISCIENCE B.V.-2023-ST-000310

PATIENT
  Age: 30 Year
  Sex: Female

DRUGS (16)
  1. MEROPENEM [Suspect]
     Active Substance: MEROPENEM
     Indication: Antibiotic therapy
     Dosage: UNK
     Route: 042
     Dates: start: 2016
  2. MEROPENEM [Suspect]
     Active Substance: MEROPENEM
     Dosage: UP TO 2G, Q4H
     Route: 042
     Dates: start: 2016
  3. MEROPENEM [Suspect]
     Active Substance: MEROPENEM
     Dosage: UP TO 2G, Q4H
     Route: 042
     Dates: start: 2016
  4. PIPERACILLIN SODIUM\TAZOBACTAM SODIUM [Concomitant]
     Active Substance: PIPERACILLIN SODIUM\TAZOBACTAM SODIUM
     Indication: Antibiotic therapy
     Dosage: 4.5 GRAM, Q6H
     Route: 042
     Dates: start: 20160322
  5. AMOXICILLIN\CLAVULANATE POTASSIUM [Concomitant]
     Active Substance: AMOXICILLIN\CLAVULANATE POTASSIUM
     Indication: Antibiotic therapy
     Dosage: UNK
     Route: 065
     Dates: start: 20160322
  6. AMIKACIN [Concomitant]
     Active Substance: AMIKACIN
     Indication: Antibiotic therapy
     Dosage: 1800 MILLIGRAM, QD
     Route: 042
     Dates: start: 2016
  7. COLISTIN [Concomitant]
     Active Substance: COLISTIN
     Indication: Antibiotic therapy
     Dosage: UP TO 20 MIU,QD
     Route: 042
     Dates: start: 2016
  8. COLISTIN [Concomitant]
     Active Substance: COLISTIN
     Dosage: UP TO 20 MIU,QD
     Route: 042
     Dates: start: 2016
  9. AMPHOTERICIN B [Concomitant]
     Active Substance: AMPHOTERICIN B
     Indication: Antifungal treatment
     Dosage: UNK
     Route: 065
     Dates: start: 2016
  10. NIVOLUMAB [Concomitant]
     Active Substance: NIVOLUMAB
     Indication: Evidence based treatment
     Dosage: UNK
     Route: 065
     Dates: start: 2016
  11. INTERFERON [Concomitant]
     Active Substance: INTERFERON
     Indication: Evidence based treatment
     Dosage: UNK
     Route: 065
     Dates: start: 2016
  12. FLUCLOXACILLIN [Concomitant]
     Active Substance: FLUCLOXACILLIN
     Indication: Antibiotic therapy
     Dosage: 2 GRAM, Q4H
     Route: 042
     Dates: start: 2016
  13. COTRIMOXAZOLE [Concomitant]
     Active Substance: SULFAMETHOXAZOLE\TRIMETHOPRIM
     Indication: Antibiotic therapy
     Dosage: 1600 MILLIGRAM, EVERY 12H
     Route: 048
     Dates: start: 2016
  14. CLARITHROMYCIN [Concomitant]
     Active Substance: CLARITHROMYCIN
     Indication: Antibiotic therapy
     Dosage: 500 MILLIGRAM, EVERY 12H
     Route: 048
     Dates: start: 2016
  15. RIFAMPIN [Concomitant]
     Active Substance: RIFAMPIN
     Indication: Antibiotic therapy
     Dosage: 450 MILLIGRAM, QD
     Route: 048
     Dates: start: 2016
  16. ETHAMBUTOL [Concomitant]
     Active Substance: ETHAMBUTOL HYDROCHLORIDE
     Indication: Antibiotic therapy
     Dosage: 1200 MILLIGRAM, QD
     Route: 048
     Dates: start: 2016

REACTIONS (1)
  - Febrile neutropenia [Unknown]
